FAERS Safety Report 24063065 (Version 1)
Quarter: 2024Q3

REPORT INFORMATION
  Report Type: Spontaneous
  Country: PL (occurrence: PL)
  Receive Date: 20240709
  Receipt Date: 20240709
  Transmission Date: 20241016
  Serious: Yes (Hospitalization)
  Sender: JOHNSON AND JOHNSON
  Company Number: None

PATIENT
  Age: 20 Year
  Sex: Female
  Weight: 60 kg

DRUGS (1)
  1. RISPERDAL [Suspect]
     Active Substance: RISPERIDONE
     Indication: Product used for unknown indication
     Dosage: NORMAL DOSAGE: 1 TABLET 2 TIMES PER DAY.
     Route: 048
     Dates: start: 20200226, end: 20200226

REACTIONS (3)
  - Altered state of consciousness [Recovering/Resolving]
  - Decreased eye contact [Recovering/Resolving]
  - Toxicity to various agents [Recovering/Resolving]
